FAERS Safety Report 5321665-6 (Version None)
Quarter: 2007Q2

REPORT INFORMATION
  Report Type: 
  Country: None (occurrence: None)
  Receive Date: 20070220
  Receipt Date: 20070112
  Transmission Date: 20071010
  Serious: No
  Sender: FDA-Public Use
  Company Number: TPA2006A02038

PATIENT
  Age: 44 Year
  Sex: Female
  Weight: 61.6892 kg

DRUGS (5)
  1. ROZEREM [Suspect]
     Indication: INSOMNIA
     Dosage: 8 MG, QHS, PER ORAL
     Route: 048
     Dates: start: 20061107, end: 20061109
  2. ASPIRIN [Concomitant]
  3. VITAMIN B (VITAMIN B) [Concomitant]
  4. UNKNOWN NATURAL PRODUCTS (ALL OTHER THERAPEUTIC PRODUCTS) [Concomitant]
  5. SUDAFED 12 HOUR [Concomitant]

REACTIONS (4)
  - DRUG INEFFECTIVE [None]
  - FATIGUE [None]
  - IMPAIRED DRIVING ABILITY [None]
  - THIRST [None]
